FAERS Safety Report 10635605 (Version 1)
Quarter: 2014Q4

REPORT INFORMATION
  Report Type: Spontaneous
  Country: JP (occurrence: JP)
  Receive Date: 20141205
  Receipt Date: 20141205
  Transmission Date: 20150529
  Serious: Yes (Other)
  Sender: FDA-Public Use
  Company Number: JP-ALLERGAN-1424694US

PATIENT
  Age: 99 Year
  Sex: Female

DRUGS (6)
  1. TRAVATAN Z [Concomitant]
     Active Substance: TRAVOPROST
  2. CRAVIT [Concomitant]
     Active Substance: LEVOFLOXACIN
  3. ALPHAGAN P [Suspect]
     Active Substance: BRIMONIDINE TARTRATE
     Indication: PRODUCT USED FOR UNKNOWN INDICATION
     Dosage: 1 GTT, BID
     Route: 047
  4. FLUMETHOLON [Concomitant]
     Active Substance: FLUOROMETHOLONE
  5. AZOPT [Concomitant]
     Active Substance: BRINZOLAMIDE
  6. TAZIN [Suspect]
     Active Substance: CARBAZOCHROME SODIUM SULFONATE
     Indication: RETINAL HAEMORRHAGE
     Dosage: 30 MG, TID
     Route: 048
     Dates: start: 20141117, end: 20141125

REACTIONS (2)
  - Inappropriate schedule of drug administration [Unknown]
  - Seizure [Unknown]

NARRATIVE: CASE EVENT DATE: 20141125
